FAERS Safety Report 9816954 (Version 1)
Quarter: 2014Q1

REPORT INFORMATION
  Report Type: Spontaneous
  Country: US (occurrence: US)
  Receive Date: 20140114
  Receipt Date: 20140114
  Transmission Date: 20141002
  Serious: Yes (Death)
  Sender: FDA-Public Use
  Company Number: US-GLAXOSMITHKLINE-A1050299A

PATIENT
  Age: 47 Year
  Sex: Female

DRUGS (14)
  1. VOTRIENT [Suspect]
     Indication: SALIVARY GLAND CANCER
     Dosage: 400MG PER DAY
     Route: 048
     Dates: start: 20130626, end: 20131215
  2. METHADONE [Suspect]
     Indication: PRODUCT USED FOR UNKNOWN INDICATION
     Route: 050
  3. TYLENOL [Concomitant]
  4. BUSPIRONE [Concomitant]
  5. FENTANYL [Concomitant]
  6. GABAPENTIN [Concomitant]
  7. GEMZAR [Concomitant]
  8. LEVOXYL [Concomitant]
  9. LOPERAMIDE [Concomitant]
  10. OXYCODONE [Concomitant]
  11. PROCHLORPERAZINE [Concomitant]
  12. GRANISETRON [Concomitant]
  13. NASOGASTRIC TUBE [Concomitant]
  14. LEVOTHYROXINE [Concomitant]

REACTIONS (4)
  - Death [Fatal]
  - Nervousness [Recovered/Resolved]
  - Drug interaction [Recovered/Resolved]
  - Incorrect route of drug administration [Recovered/Resolved]
